FAERS Safety Report 16161805 (Version 2)
Quarter: 2019Q2

REPORT INFORMATION
  Report Type: Spontaneous
  Country: US (occurrence: US)
  Receive Date: 20190405
  Receipt Date: 20190408
  Transmission Date: 20190711
  Serious: No
  Sender: FDA-Public Use
  Company Number: US-PFIZER INC-2019140138

PATIENT
  Age: 63 Year
  Sex: Female
  Weight: 80.27 kg

DRUGS (1)
  1. FLECTOR [Suspect]
     Active Substance: DICLOFENAC EPOLAMINE
     Indication: BACK PAIN
     Dosage: UNK UNK, 2X/DAY (1.3% APPLIED TO AFFECTED AREA, CHANGE EVERY 12 HOURS)
     Dates: start: 201801

REACTIONS (3)
  - Application site pruritus [Not Recovered/Not Resolved]
  - Application site urticaria [Not Recovered/Not Resolved]
  - Application site rash [Not Recovered/Not Resolved]

NARRATIVE: CASE EVENT DATE: 201812
